FAERS Safety Report 9011559 (Version 2)
Quarter: 2013Q1

REPORT INFORMATION
  Report Type: Spontaneous
  Country: IL (occurrence: IL)
  Receive Date: 20130108
  Receipt Date: 20130117
  Transmission Date: 20140127
  Serious: Yes (Hospitalization, Other)
  Sender: FDA-Public Use
  Company Number: IL-PFIZER INC-2013005496

PATIENT
  Age: 24 Year
  Sex: Female

DRUGS (1)
  1. GEODON [Suspect]
     Dosage: ^80^, UNKNOWN UNITS AND FREQUENCY
     Route: 048

REACTIONS (2)
  - Fall [Recovered/Resolved]
  - Dizziness [Recovered/Resolved]
